FAERS Safety Report 12738183 (Version 2)
Quarter: 2017Q1

REPORT INFORMATION
  Report Type: Spontaneous
  Country: CH (occurrence: CH)
  Receive Date: 20160913
  Receipt Date: 20170208
  Transmission Date: 20170428
  Serious: Yes (Other)
  Sender: FDA-Public Use
  Company Number: CH-JNJFOC-20160907359

PATIENT
  Age: 69 Year
  Sex: Female

DRUGS (10)
  1. EBIXA [Concomitant]
     Active Substance: MEMANTINE HYDROCHLORIDE
     Indication: DEMENTIA ALZHEIMER^S TYPE
     Route: 048
     Dates: start: 201405
  2. ZYPREXA [Suspect]
     Active Substance: OLANZAPINE
     Indication: AGITATION
     Route: 048
     Dates: start: 20160707, end: 20160718
  3. TEMESTA [Suspect]
     Active Substance: LORAZEPAM
     Indication: AGITATION
     Route: 048
     Dates: start: 20160707, end: 20160718
  4. HALDOL [Suspect]
     Active Substance: HALOPERIDOL
     Indication: PSYCHOMOTOR HYPERACTIVITY
     Route: 048
     Dates: start: 201512, end: 20160706
  5. TRITTICO [Concomitant]
     Active Substance: TRAZODONE HYDROCHLORIDE
     Route: 048
     Dates: start: 20160816, end: 20160819
  6. HALDOL [Suspect]
     Active Substance: HALOPERIDOL
     Indication: HALLUCINATION, VISUAL
     Route: 048
     Dates: start: 201512, end: 20160706
  7. REMERON [Concomitant]
     Active Substance: MIRTAZAPINE
     Route: 048
     Dates: start: 20160808, end: 20160815
  8. LYRICA [Concomitant]
     Active Substance: PREGABALIN
     Route: 048
     Dates: start: 20160817, end: 20160819
  9. SEROQUEL [Suspect]
     Active Substance: QUETIAPINE FUMARATE
     Indication: AGITATION
     Dosage: 12.5-25-25
     Route: 048
     Dates: start: 20160727, end: 20160819
  10. ORFIRIL [Concomitant]
     Active Substance: VALPROIC ACID
     Dosage: 550-0-825
     Route: 048
     Dates: start: 20160809, end: 20160819

REACTIONS (7)
  - Hallucinations, mixed [Recovered/Resolved]
  - Restlessness [Not Recovered/Not Resolved]
  - Condition aggravated [Recovered/Resolved]
  - Agitation [Recovered/Resolved]
  - Dysphagia [Recovered/Resolved]
  - Muscle rigidity [Recovered/Resolved]
  - Akathisia [Not Recovered/Not Resolved]

NARRATIVE: CASE EVENT DATE: 201606
